FAERS Safety Report 16444043 (Version 1)
Quarter: 2019Q2

REPORT INFORMATION
  Report Type: Spontaneous
  Country: US (occurrence: US)
  Receive Date: 20190618
  Receipt Date: 20190618
  Transmission Date: 20190711
  Serious: No
  Sender: FDA-Public Use
  Company Number: US-TEVA-2019-US-1061367

PATIENT
  Sex: Male
  Weight: 82 kg

DRUGS (6)
  1. STIOLTO RESIPMAT [Concomitant]
     Indication: ASTHMA
  2. FLONASE [Concomitant]
     Active Substance: FLUTICASONE PROPIONATE
     Indication: NASAL DISCOMFORT
  3. PROAIR HFA [Suspect]
     Active Substance: ALBUTEROL SULFATE
     Indication: CHRONIC OBSTRUCTIVE PULMONARY DISEASE
  4. SALINE [Concomitant]
     Active Substance: SODIUM CHLORIDE
     Indication: NASAL DISCOMFORT
  5. PROAIR HFA [Suspect]
     Active Substance: ALBUTEROL SULFATE
     Indication: ASTHMA
     Dosage: ONE TO TWO PUFFS MORNING AND NIGHT, CAN USE DURING THE DAY IF NEEDED
  6. STIOLTO RESIPMAT [Concomitant]
     Indication: CHRONIC OBSTRUCTIVE PULMONARY DISEASE

REACTIONS (4)
  - Product prescribing error [Unknown]
  - Dyspnoea [Not Recovered/Not Resolved]
  - Product storage error [Unknown]
  - Product use in unapproved indication [Unknown]
